FAERS Safety Report 9496172 (Version 2)
Quarter: 2015Q2

REPORT INFORMATION
  Report Type: Spontaneous
  Country: US (occurrence: US)
  Receive Date: 20130904
  Receipt Date: 20150605
  Transmission Date: 20150821
  Serious: Yes (Hospitalization)
  Sender: FDA-Public Use
  Company Number: US-SHIRE-ALL1-2013-05762

PATIENT
  Age: 12 Year
  Sex: Male
  Weight: 69.8 kg

DRUGS (11)
  1. VYVANSE [Suspect]
     Active Substance: LISDEXAMFETAMINE DIMESYLATE
     Indication: ATTENTION DEFICIT/HYPERACTIVITY DISORDER
  2. DESYREL [Suspect]
     Active Substance: TRAZODONE HYDROCHLORIDE
     Indication: AFFECTIVE DISORDER
     Dosage: 25 MG, 1X/DAY:QD (25 MG NIGHTLY)
     Route: 048
     Dates: start: 20130108, end: 20130617
  3. CATAPRES [Suspect]
     Active Substance: CLONIDINE HYDROCHLORIDE
     Indication: AFFECTIVE DISORDER
     Dosage: 0.2 MG, 1X/DAY:QD (0.2 MG NIGHTLY)
     Route: 048
     Dates: start: 20120301
  4. DEPAKOTE [Suspect]
     Active Substance: DIVALPROEX SODIUM
     Dosage: 250 MG, 3X/DAY:TID
     Route: 048
     Dates: start: 20130621
  5. PROZAC [Suspect]
     Active Substance: FLUOXETINE HYDROCHLORIDE
     Indication: AFFECTIVE DISORDER
     Dosage: 10 MG, 1X/DAY:QD
     Route: 048
     Dates: start: 20121108
  6. THORAZINE [Suspect]
     Active Substance: CHLORPROMAZINE
     Indication: AGGRESSION
  7. DESYREL [Suspect]
     Active Substance: TRAZODONE HYDROCHLORIDE
     Dosage: 12.5 MG, 1X/DAY:QD (12.5 MG NIGHTLY)
     Route: 048
     Dates: start: 20130617
  8. THORAZINE [Suspect]
     Active Substance: CHLORPROMAZINE
     Indication: AFFECTIVE DISORDER
     Dosage: 20 MG, 3X/DAY:TID
     Route: 048
     Dates: start: 20130326
  9. DEPAKOTE [Suspect]
     Active Substance: DIVALPROEX SODIUM
     Indication: AFFECTIVE DISORDER
     Dosage: 300 MG, 2X/DAY:BID
     Route: 048
     Dates: start: 20130301, end: 20130617
  10. THORAZINE [Suspect]
     Active Substance: CHLORPROMAZINE
     Indication: AGITATION
     Dosage: 25 MG, 3X/DAY:TID
     Route: 048
     Dates: start: 20130617
  11. VYVANSE [Suspect]
     Active Substance: LISDEXAMFETAMINE DIMESYLATE
     Indication: AFFECTIVE DISORDER
     Dosage: 60 MG, 1X/DAY:QD (40 MG IN THE MORNING AND 20 MG AT NOON))
     Route: 048
     Dates: start: 20130321

REACTIONS (4)
  - Affective disorder [Recovered/Resolved]
  - Treatment noncompliance [Recovered/Resolved]
  - Aggression [Recovered/Resolved]
  - Inappropriate schedule of drug administration [Not Recovered/Not Resolved]

NARRATIVE: CASE EVENT DATE: 201306
